FAERS Safety Report 15942041 (Version 1)
Quarter: 2019Q1

REPORT INFORMATION
  Report Type: Spontaneous
  Country: US (occurrence: US)
  Receive Date: 20190211
  Receipt Date: 20190211
  Transmission Date: 20190417
  Serious: No
  Sender: FDA-Public Use
  Company Number: None

PATIENT
  Age: 58 Year
  Sex: Female

DRUGS (1)
  1. LISINOPRIL. [Suspect]
     Active Substance: LISINOPRIL
     Route: 048
     Dates: start: 20180524, end: 20190207

REACTIONS (3)
  - Swollen tongue [None]
  - Angioedema [None]
  - Mini-tracheostomy [None]

NARRATIVE: CASE EVENT DATE: 20190205
